FAERS Safety Report 10519406 (Version 1)
Quarter: 2014Q4

REPORT INFORMATION
  Report Type: Spontaneous
  Country: SE (occurrence: SE)
  Receive Date: 20141015
  Receipt Date: 20141015
  Transmission Date: 20150528
  Serious: Yes (Disabling, Other)
  Sender: FDA-Public Use
  Company Number: SE-AMGEN-SWESP2014077995

PATIENT
  Age: 73 Year
  Sex: Male

DRUGS (9)
  1. CASODEX [Concomitant]
     Active Substance: BICALUTAMIDE
  2. ALLOPURINOL. [Concomitant]
     Active Substance: ALLOPURINOL
  3. PAMORELIN [Concomitant]
  4. XGEVA [Suspect]
     Active Substance: DENOSUMAB
     Indication: PRODUCT USED FOR UNKNOWN INDICATION
     Dosage: 120 MG, UNK
     Route: 065
  5. BISOPROLOL [Concomitant]
     Active Substance: BISOPROLOL
  6. DICLOFENAC [Concomitant]
     Active Substance: DICLOFENAC
  7. BETAPRED [Concomitant]
     Active Substance: BETAMETHASONE SODIUM PHOSPHATE
  8. BICALUTAMIDE. [Concomitant]
     Active Substance: BICALUTAMIDE
  9. CALCICHEW-D3 SPEARMINT [Concomitant]
     Active Substance: CALCIUM\CHOLECALCIFEROL

REACTIONS (1)
  - Osteonecrosis of jaw [Not Recovered/Not Resolved]
